FAERS Safety Report 7397141-6 (Version None)
Quarter: 2011Q2

REPORT INFORMATION
  Report Type: 
  Country: None (occurrence: None)
  Receive Date: 20110406
  Receipt Date: 20110331
  Transmission Date: 20111010
  Serious: Yes (Hospitalization)
  Sender: FDA-Public Use
  Company Number: B0703090A

PATIENT

DRUGS (1)
  1. IMIJECT [Suspect]
     Route: 042

REACTIONS (4)
  - DRUG INEFFECTIVE [None]
  - PRODUCT QUALITY ISSUE [None]
  - DEVICE FAILURE [None]
  - CLUSTER HEADACHE [None]
